FAERS Safety Report 5860933-6 (Version None)
Quarter: 2008Q3

REPORT INFORMATION
  Report Type: 
  Country: None (occurrence: None)
  Receive Date: 20080827
  Receipt Date: 20080805
  Transmission Date: 20090109
  Serious: Yes (Life-Threatening)
  Sender: FDA-Public Use
  Company Number: CH-ABBOTT-08P-151-0472684-00

PATIENT
  Age: 37 Year
  Sex: Male

DRUGS (3)
  1. AKINETON [Suspect]
     Indication: DRUG USE FOR UNKNOWN INDICATION
     Route: 048
     Dates: start: 20080623
  2. CLOZAPINE [Suspect]
     Indication: SCHIZOPHRENIA, PARANOID TYPE
     Route: 048
     Dates: start: 20080619
  3. LORAZEPAM [Suspect]
     Indication: DRUG USE FOR UNKNOWN INDICATION
     Route: 048
     Dates: start: 20080613

REACTIONS (4)
  - ANTICHOLINERGIC SYNDROME [None]
  - COGNITIVE DISORDER [None]
  - HALLUCINATION, VISUAL [None]
  - MEMORY IMPAIRMENT [None]
